FAERS Safety Report 8524703-2 (Version None)
Quarter: 2012Q3

REPORT INFORMATION
  Report Type: 
  Country: None (occurrence: None)
  Receive Date: 20120720
  Receipt Date: 20120710
  Transmission Date: 20120928
  Serious: Yes (Death)
  Sender: FDA-Public Use
  Company Number: IT-CELGENEUS-083-21880-11100549

PATIENT
  Sex: Female

DRUGS (5)
  1. REVLIMID [Suspect]
     Dosage: 10 MILLIGRAM
     Route: 048
     Dates: start: 20090605, end: 20090627
  2. REVLIMID [Suspect]
     Route: 048
     Dates: start: 20100414, end: 20101020
  3. REVLIMID [Suspect]
     Route: 048
     Dates: start: 20091229
  4. REVLIMID [Suspect]
     Route: 048
     Dates: start: 20100127
  5. REVLIMID [Suspect]
     Route: 048
     Dates: start: 20100215, end: 20100310

REACTIONS (2)
  - MYELODYSPLASTIC SYNDROME [None]
  - DYSPNOEA [None]
